FAERS Safety Report 14397985 (Version 1)
Quarter: 2018Q1

REPORT INFORMATION
  Report Type: Spontaneous
  Country: US (occurrence: US)
  Receive Date: 20180116
  Receipt Date: 20180116
  Transmission Date: 20180509
  Serious: No
  Sender: FDA-Public Use
  Company Number: US-ALLERGAN-1770078US

PATIENT
  Sex: Male

DRUGS (3)
  1. VICODIN [Concomitant]
     Active Substance: ACETAMINOPHEN\HYDROCODONE BITARTRATE
     Indication: NECK PAIN
     Dosage: UNK UNK, PRN
     Route: 048
     Dates: start: 2016, end: 201712
  2. BOTOX [Suspect]
     Active Substance: ONABOTULINUMTOXINA
     Indication: MIGRAINE
     Dosage: UNK, SINGLE
     Route: 030
     Dates: start: 2014, end: 201709
  3. ADVIL [Concomitant]
     Active Substance: IBUPROFEN
     Indication: NECK PAIN
     Dosage: UNK UNK, PRN
     Route: 048
     Dates: start: 2014

REACTIONS (1)
  - Neck pain [Recovering/Resolving]
